FAERS Safety Report 5615223-3 (Version None)
Quarter: 2008Q1

REPORT INFORMATION
  Report Type: 
  Country: None (occurrence: None)
  Receive Date: 20080206
  Receipt Date: 20080128
  Transmission Date: 20080703
  Serious: Yes (Death)
  Sender: FDA-Public Use
  Company Number: US-AVENTIS-200810623US

PATIENT
  Sex: Male

DRUGS (1)
  1. LOVENOX [Suspect]

REACTIONS (1)
  - LUNG NEOPLASM MALIGNANT [None]
